FAERS Safety Report 6179390-8 (Version None)
Quarter: 2009Q2

REPORT INFORMATION
  Report Type: 
  Country: None (occurrence: None)
  Receive Date: 20090505
  Receipt Date: 20090427
  Transmission Date: 20091009
  Serious: Yes (Death, Life-Threatening, Congenital Anomaly)
  Sender: FDA-Public Use
  Company Number: A0662263A

PATIENT
  Sex: Male
  Weight: 1.4 kg

DRUGS (4)
  1. PAXIL [Suspect]
     Indication: DEPRESSION
     Dosage: 10MG PER DAY
     Dates: start: 20020101, end: 20050501
  2. BRETHINE [Concomitant]
  3. VITAMIN TAB [Concomitant]
  4. CALCIUM [Concomitant]

REACTIONS (10)
  - CONGENITAL CARDIOVASCULAR ANOMALY [None]
  - CONGENITAL HAND MALFORMATION [None]
  - DIAPHRAGMATIC HERNIA [None]
  - DRUG EXPOSURE DURING PREGNANCY [None]
  - HEART INJURY [None]
  - LUNG DISORDER [None]
  - MULTIPLE CONGENITAL ABNORMALITIES [None]
  - TRANSPOSITION OF THE GREAT VESSELS [None]
  - TRISOMY 18 [None]
  - VENTRICULAR SEPTAL DEFECT [None]
